FAERS Safety Report 9819329 (Version 1)
Quarter: 2013Q4

REPORT INFORMATION
  Report Type: Spontaneous
  Country: US (occurrence: None)
  Receive Date: 20131223
  Receipt Date: 20131223
  Transmission Date: 20140711
  Serious: No
  Sender: FDA-Public Use
  Company Number: 220921

PATIENT
  Age: 80 Year
  Sex: Male

DRUGS (1)
  1. PICATO (0.015 %, GEL) [Suspect]
     Indication: ACTINIC KERATOSIS
     Dosage: (1 IN 1 D), TOPICAL
     Route: 061
     Dates: start: 20130303, end: 20130305

REACTIONS (11)
  - Wound [None]
  - Lip disorder [None]
  - Application site haemorrhage [None]
  - Application site dryness [None]
  - Application site reaction [None]
  - Scar [None]
  - Application site irritation [None]
  - Lip swelling [None]
  - Application site swelling [None]
  - Application site vesicles [None]
  - Application site exfoliation [None]
